FAERS Safety Report 8092041-0 (Version None)
Quarter: 2012Q1

REPORT INFORMATION
  Report Type: 
  Country: None (occurrence: None)
  Receive Date: 20120129
  Receipt Date: 20111205
  Transmission Date: 20120608
  Serious: Yes (Hospitalization)
  Sender: FDA-Public Use
  Company Number: US-ABBOTT-11P-163-0869523-00

PATIENT
  Sex: Female

DRUGS (8)
  1. SAFRA [Concomitant]
     Indication: PRODUCT USED FOR UNKNOWN INDICATION
  2. SAPHRIS [Concomitant]
     Indication: INSOMNIA
  3. HUMIRA [Suspect]
     Indication: CROHN'S DISEASE
     Dosage: LOADING DOSE 160 MG, DAY ONE
     Dates: start: 20111024, end: 20111024
  4. ABILIFY [Concomitant]
     Indication: PRODUCT USED FOR UNKNOWN INDICATION
  5. ZOLOFT [Concomitant]
     Indication: PRODUCT USED FOR UNKNOWN INDICATION
  6. XANAX [Concomitant]
     Indication: PRODUCT USED FOR UNKNOWN INDICATION
  7. HUMIRA [Suspect]
  8. ATENOLOL [Concomitant]
     Indication: PRODUCT USED FOR UNKNOWN INDICATION

REACTIONS (15)
  - PYREXIA [None]
  - INSOMNIA [None]
  - RASH PUSTULAR [None]
  - STAPHYLOCOCCAL INFECTION [None]
  - OEDEMA PERIPHERAL [None]
  - PAPULE [None]
  - RASH PAPULAR [None]
  - IRRITABILITY [None]
  - CUTIS LAXA [None]
  - ABDOMINAL PAIN [None]
  - PAIN [None]
  - BLOOD POTASSIUM DECREASED [None]
  - ERYTHEMA [None]
  - CYST [None]
  - WHITE BLOOD CELL COUNT DECREASED [None]
